FAERS Safety Report 5466091-4 (Version None)
Quarter: 2007Q3

REPORT INFORMATION
  Report Type: 
  Country: None (occurrence: None)
  Receive Date: 20070919
  Receipt Date: 20070906
  Transmission Date: 20080115
  Serious: Yes (Hospitalization)
  Sender: FDA-Public Use
  Company Number: RENA-12228

PATIENT
  Age: 62 Year
  Sex: Male
  Weight: 66.7 kg

DRUGS (13)
  1. RENAGEL [Suspect]
     Indication: HYPERPHOSPHATAEMIA
     Dosage: 1.5 G TID PO
     Route: 048
     Dates: end: 20060918
  2. RENAGEL [Suspect]
     Indication: HYPERPHOSPHATAEMIA
     Dosage: 1.5 G TID PO
     Route: 048
     Dates: start: 20070622
  3. LAXAID                  (SODIUM PICOSULFATE) [Suspect]
     Indication: CONSTIPATION
     Dosage: 2 TAB ONCE PO
     Route: 048
     Dates: start: 20060918
  4. TELEMINSOFT [Suspect]
     Indication: CONSTIPATION
     Dates: start: 20060918
  5. SELBEX [Concomitant]
  6. CALTAN                (CALCIUM CARBONATE) [Concomitant]
  7. STOGAR                  (LAFUTIDINE) [Concomitant]
  8. FUROSEMIDE [Concomitant]
  9. CLONAZEPAM [Concomitant]
  10. MICARDIS [Concomitant]
  11. FULSTAN                     (FALECALCITRIOL) [Concomitant]
  12. DOXAZOSIN MESYLATE [Concomitant]
  13. CALBLOCK                (AZENIDIPINE) [Concomitant]

REACTIONS (6)
  - ASCITES [None]
  - CONSTIPATION [None]
  - DIVERTICULAR PERFORATION [None]
  - DIVERTICULITIS [None]
  - HAEMODIALYSIS [None]
  - PERITONITIS [None]
